FAERS Safety Report 7377329-0 (Version None)
Quarter: 2011Q1

REPORT INFORMATION
  Report Type: 
  Country: None (occurrence: None)
  Receive Date: 20110328
  Receipt Date: 20110317
  Transmission Date: 20110831
  Serious: Yes (Other)
  Sender: FDA-Public Use
  Company Number: ES-JNJFOC-20110306802

PATIENT
  Sex: Female
  Weight: 58 kg

DRUGS (4)
  1. INVEGA [Suspect]
     Indication: DELIRIUM
     Route: 048
  2. INVEGA [Suspect]
     Route: 048
  3. INVEGA [Suspect]
     Indication: PRODUCT USED FOR UNKNOWN INDICATION
     Route: 048
  4. INVEGA [Suspect]
     Route: 048

REACTIONS (5)
  - OXYGEN SATURATION DECREASED [None]
  - DYSPNOEA [None]
  - CHOKING [None]
  - TONGUE DISORDER [None]
  - HEART RATE DECREASED [None]
